FAERS Safety Report 6918100-0 (Version None)
Quarter: 2010Q3

REPORT INFORMATION
  Report Type: 
  Country: None (occurrence: None)
  Receive Date: 20100806
  Receipt Date: 20100802
  Transmission Date: 20110219
  Serious: Yes (Hospitalization, Other)
  Sender: FDA-Public Use
  Company Number: 651897

PATIENT
  Age: 43 Year
  Sex: Male

DRUGS (9)
  1. VINCRISTINE SULFATE [Suspect]
  2. DOXORUBICIN HYDROCHLORIDE [Suspect]
     Dates: start: 20100326
  3. PREDNISOLONE [Suspect]
     Dates: start: 20100326
  4. (RITUXIMAB) [Suspect]
  5. (ZAPONEX) [Suspect]
     Dosage: 600 MG MILLIGRAM(S), ORAL
     Route: 048
     Dates: start: 20070510
  6. CYCLOPHOSPHAMIDE [Suspect]
     Dates: start: 20100326
  7. (AMISULPRIDE) [Concomitant]
  8. (VITAMIN B12 NOS) [Concomitant]
  9. LANSOPRAZOLE [Concomitant]

REACTIONS (3)
  - LEUKOPENIA [None]
  - LYMPHOMA [None]
  - NEUTROPENIA [None]
